FAERS Safety Report 9504405 (Version 2)
Quarter: 2013Q3

REPORT INFORMATION
  Report Type: Report from Study
  Country: JP (occurrence: JP)
  Receive Date: 20130906
  Receipt Date: 20130906
  Transmission Date: 20140515
  Serious: Yes (Hospitalization)
  Sender: FDA-Public Use
  Company Number: JP-BRISTOL-MYERS SQUIBB COMPANY-16382806

PATIENT
  Age: 19 Year
  Sex: Male
  Weight: 81 kg

DRUGS (5)
  1. ABILIFY TABS [Suspect]
     Indication: SCHIZOPHRENIA
     Route: 048
     Dates: start: 20110203, end: 20120119
  2. AKINETON [Concomitant]
     Dosage: TABS,08MAR2012-1MG PER 1 DAY.
     Dates: start: 20100428
  3. DEPAS [Concomitant]
     Dosage: 1DF=3 TABS AFTER A MEAL
     Dates: start: 20120105, end: 20120125
  4. RISPERDAL [Concomitant]
     Dosage: TAB:19JAN2012 1TAB IN THE MRNG,ORAL SOLUTION:09JAN2012 AT THE TIME OF UNREST
     Dates: start: 20120109, end: 20120323
  5. MYSLEE [Concomitant]
     Dosage: 1DF=1 TAB AT THE TIME OF DIFFICULTY SLEEPING, TABS
     Dates: start: 20120119, end: 20120323

REACTIONS (2)
  - Hallucination, auditory [Recovered/Resolved]
  - Persecutory delusion [Recovered/Resolved]
